FAERS Safety Report 16277272 (Version 1)
Quarter: 2019Q2

REPORT INFORMATION
  Report Type: Spontaneous
  Country: US (occurrence: US)
  Receive Date: 20190506
  Receipt Date: 20190506
  Transmission Date: 20190711
  Serious: Yes (Hospitalization)
  Sender: FDA-Public Use
  Company Number: None

PATIENT
  Sex: Female

DRUGS (7)
  1. LEXAPRO [Concomitant]
     Active Substance: ESCITALOPRAM OXALATE
  2. VITAMIN D3 [Concomitant]
     Active Substance: CHOLECALCIFEROL
  3. CALCIUM 600 [Concomitant]
     Active Substance: CALCIUM
  4. FASLODEX [Concomitant]
     Active Substance: FULVESTRANT
  5. TYLENOL [Concomitant]
     Active Substance: ACETAMINOPHEN
  6. IBRANCE [Suspect]
     Active Substance: PALBOCICLIB
     Indication: BREAST CANCER FEMALE
     Dosage: ?          OTHER FREQUENCY:QD 1-21,Q 28 DAYS;?
     Route: 048
     Dates: start: 20181117
  7. GINGER ROOT [Concomitant]
     Active Substance: GINGER

REACTIONS (1)
  - Tooth abscess [None]
